FAERS Safety Report 7722099-7 (Version None)
Quarter: 2011Q3

REPORT INFORMATION
  Report Type: 
  Country: None (occurrence: None)
  Receive Date: 20110831
  Receipt Date: 20110819
  Transmission Date: 20111222
  Serious: Yes (Disabling, Other)
  Sender: FDA-Public Use
  Company Number: GB-PURDUE-USA-2011-0074031

PATIENT
  Age: 49 Year
  Sex: Male

DRUGS (15)
  1. LISINOPRIL [Concomitant]
     Indication: PRODUCT USED FOR UNKNOWN INDICATION
  2. MOVICOL                            /01625101/ [Concomitant]
     Indication: PRODUCT USED FOR UNKNOWN INDICATION
  3. PARACETAMOL/DIHYDROCODEINE [Concomitant]
     Indication: PRODUCT USED FOR UNKNOWN INDICATION
  4. METRONIDAZOLE [Concomitant]
     Indication: PRODUCT USED FOR UNKNOWN INDICATION
  5. SIMVASTATIN [Concomitant]
     Indication: PRODUCT USED FOR UNKNOWN INDICATION
  6. ZINC SPANSULE [Concomitant]
     Indication: PRODUCT USED FOR UNKNOWN INDICATION
  7. OMEPRAZOLE [Concomitant]
     Indication: PRODUCT USED FOR UNKNOWN INDICATION
  8. VANCOMYCIN [Concomitant]
     Indication: PRODUCT USED FOR UNKNOWN INDICATION
  9. TRAMADOL HCL [Suspect]
     Indication: PAIN
     Dosage: 100 MG, PRN
     Route: 048
     Dates: start: 20110720, end: 20110804
  10. LINEZOLID [Suspect]
     Indication: DEVICE RELATED INFECTION
     Dosage: 600 MG, BID
     Route: 042
     Dates: start: 20110728, end: 20110805
  11. TENORMIN [Concomitant]
     Indication: PRODUCT USED FOR UNKNOWN INDICATION
  12. ALLOPURINOL [Concomitant]
     Indication: PRODUCT USED FOR UNKNOWN INDICATION
  13. ASCORBIC ACID [Concomitant]
     Indication: PRODUCT USED FOR UNKNOWN INDICATION
  14. GENTAMICIN [Concomitant]
     Indication: PRODUCT USED FOR UNKNOWN INDICATION
  15. SENNA                              /00142201/ [Concomitant]
     Indication: PRODUCT USED FOR UNKNOWN INDICATION

REACTIONS (8)
  - ABNORMAL BEHAVIOUR [None]
  - PARANOIA [None]
  - ANAEMIA [None]
  - THROMBOCYTOPENIA [None]
  - PSYCHOTIC BEHAVIOUR [None]
  - HALLUCINATIONS, MIXED [None]
  - PANCYTOPENIA [None]
  - AGGRESSION [None]
